FAERS Safety Report 4957959-3 (Version None)
Quarter: 2006Q1

REPORT INFORMATION
  Report Type: 
  Country: None (occurrence: None)
  Receive Date: 20060330
  Receipt Date: 20051005
  Transmission Date: 20060701
  Serious: Yes (Hospitalization, Other)
  Sender: FDA-Public Use
  Company Number: US-MERCK-0510USA04433

PATIENT
  Age: 63 Year
  Sex: Male
  Weight: 75 kg

DRUGS (6)
  1. VIOXX [Suspect]
     Indication: ARTHRITIS
     Route: 048
     Dates: start: 20011231, end: 20040901
  2. SEROQUEL [Suspect]
     Route: 065
  3. ATACAND [Concomitant]
     Route: 065
  4. NORVASC [Concomitant]
     Route: 065
  5. PLAVIX [Concomitant]
     Route: 065
  6. PROZAC [Concomitant]
     Route: 065

REACTIONS (32)
  - ANHEDONIA [None]
  - ASTHENIA [None]
  - ATRIAL FIBRILLATION [None]
  - CHEST PAIN [None]
  - COLONIC POLYP [None]
  - COUGH [None]
  - CYST [None]
  - DEAFNESS [None]
  - DEMENTIA [None]
  - DEPRESSION [None]
  - DIVERTICULUM INTESTINAL [None]
  - DIZZINESS [None]
  - DYSPNOEA [None]
  - FATIGUE [None]
  - GASTROOESOPHAGEAL REFLUX DISEASE [None]
  - GOITRE [None]
  - HAEMORRHOIDS [None]
  - HIATUS HERNIA [None]
  - HYPERHIDROSIS [None]
  - HYPERREFLEXIA [None]
  - LUNG DISORDER [None]
  - MEMORY IMPAIRMENT [None]
  - NOCTURIA [None]
  - OESOPHAGEAL DISORDER [None]
  - PAIN IN EXTREMITY [None]
  - PALPITATIONS [None]
  - POLLAKIURIA [None]
  - SINUS OPERATION [None]
  - SOMNOLENCE [None]
  - TINNITUS [None]
  - TRANSIENT ISCHAEMIC ATTACK [None]
  - WEIGHT DECREASED [None]
